FAERS Safety Report 9286878 (Version 2)
Quarter: 2013Q2

REPORT INFORMATION
  Report Type: Spontaneous
  Country: US (occurrence: US)
  Receive Date: 20130513
  Receipt Date: 20130612
  Transmission Date: 20140414
  Serious: No
  Sender: FDA-Public Use
  Company Number: US-PFIZER INC-2013145768

PATIENT
  Age: 66 Year
  Sex: Male
  Weight: 113.38 kg

DRUGS (6)
  1. LYRICA [Suspect]
     Indication: NEURALGIA
     Dosage: UNK
     Dates: start: 2008
  2. LYRICA [Suspect]
     Indication: BACK PAIN
     Dosage: 300 MG, 2X/DAY (BID)
     Route: 048
     Dates: start: 2010, end: 20130506
  3. LYRICA [Suspect]
     Indication: NEURALGIA
  4. LYRICA [Suspect]
     Indication: POST LAMINECTOMY SYNDROME
  5. DURAGESIC [Concomitant]
     Dosage: UNK
  6. PERCOCET [Concomitant]
     Dosage: UNK

REACTIONS (6)
  - Muscle spasms [Unknown]
  - Restless legs syndrome [Unknown]
  - Dyskinesia [Unknown]
  - Tremor [Unknown]
  - Verbal abuse [Unknown]
  - Drug withdrawal syndrome [Unknown]
